FAERS Safety Report 18095684 (Version 1)
Quarter: 2020Q3

REPORT INFORMATION
  Report Type: Spontaneous
  Country: US (occurrence: US)
  Receive Date: 20200730
  Receipt Date: 20200730
  Transmission Date: 20201103
  Serious: No
  Sender: FDA-Public Use
  Company Number: US-PFIZER INC-2017045730

PATIENT
  Age: 49 Year
  Sex: Female
  Weight: 88 kg

DRUGS (6)
  1. ROBITUSSIN MAXIMUM STRENGTH COUGH [Concomitant]
     Active Substance: DEXTROMETHORPHAN HYDROBROMIDE
     Indication: COUGH
     Dosage: 30 MG, AS NEEDED (EVERY 4 HOURS AS NEEDED)
     Route: 048
  2. ATIVAN [Concomitant]
     Active Substance: LORAZEPAM
     Indication: ANXIETY
     Dosage: 1 MG, AS NEEDED (EACH NIGHT 4PM OR AT BEDTIME)
     Route: 048
  3. PRILOSEC [Concomitant]
     Active Substance: OMEPRAZOLE MAGNESIUM
     Dosage: 20 MG, (1 TIME A DAY IN THE MORNING, SOMETIMES TAKES 2 TABLETS)
     Route: 048
  4. PRISTIQ EXTENDED?RELEASE [Suspect]
     Active Substance: DESVENLAFAXINE SUCCINATE
     Dosage: 75 MG, EVERY NIGHT AT BEDTIME (1 AND 1/2 TABLETS)
     Route: 048
     Dates: start: 20170104
  5. PRISTIQ EXTENDED?RELEASE [Suspect]
     Active Substance: DESVENLAFAXINE SUCCINATE
     Indication: MAJOR DEPRESSION
     Dosage: 75 MG, 1X/DAY, (50 MG 1 AND 1/2 TABLETS BY MOUTH EVERY NIGHT)
     Route: 048
     Dates: start: 2014
  6. PRISTIQ EXTENDED?RELEASE [Suspect]
     Active Substance: DESVENLAFAXINE SUCCINATE
     Dosage: 75 MG, EVERY NIGHT AT BEDTIME (1 AND 1/2 TABLETS)
     Route: 048
     Dates: start: 20181219

REACTIONS (2)
  - Body height decreased [Unknown]
  - Intentional product misuse [Unknown]

NARRATIVE: CASE EVENT DATE: 2014
